FAERS Safety Report 5504736-0 (Version None)
Quarter: 2007Q4

REPORT INFORMATION
  Report Type: 
  Country: None (occurrence: None)
  Receive Date: 20071031
  Receipt Date: 20061009
  Transmission Date: 20080405
  Serious: Yes (Other)
  Sender: FDA-Public Use
  Company Number: 2006VX001739

PATIENT
  Age: 30 Year
  Sex: Female

DRUGS (1)
  1. LIBRAX [Suspect]
     Dosage: ; PO
     Route: 048

REACTIONS (1)
  - HYPOGLYCAEMIA [None]
